FAERS Safety Report 15344129 (Version 1)
Quarter: 2018Q3

REPORT INFORMATION
  Report Type: Spontaneous
  Country: JP (occurrence: JP)
  Receive Date: 20180903
  Receipt Date: 20180903
  Transmission Date: 20181010
  Serious: Yes (Hospitalization)
  Sender: FDA-Public Use
  Company Number: JP-APOTEX-2018AP016301

PATIENT
  Age: 86 Year
  Sex: Female

DRUGS (2)
  1. PAXIL [Suspect]
     Active Substance: PAROXETINE HYDROCHLORIDE
     Dosage: 10 MG, UNK
     Route: 048
  2. LEVODOPA [Suspect]
     Active Substance: LEVODOPA
     Indication: PARKINSON^S DISEASE
     Dosage: UNK
     Route: 065

REACTIONS (14)
  - Anxiety [Unknown]
  - Clinomania [Recovering/Resolving]
  - Fall [Unknown]
  - Bradykinesia [Unknown]
  - Fatigue [Unknown]
  - Resting tremor [Unknown]
  - Parkinsonian gait [Unknown]
  - Postural reflex impairment [Unknown]
  - Malaise [Unknown]
  - Back pain [Recovering/Resolving]
  - Gait disturbance [Unknown]
  - Arthralgia [Recovering/Resolving]
  - Cogwheel rigidity [Unknown]
  - Nausea [Unknown]
